FAERS Safety Report 10233760 (Version 1)
Quarter: 2014Q2

REPORT INFORMATION
  Report Type: Spontaneous
  Country: IT (occurrence: IT)
  Receive Date: 20140612
  Receipt Date: 20140612
  Transmission Date: 20141212
  Serious: Yes (Other)
  Sender: FDA-Public Use
  Company Number: IT-ACTAVIS-2014-12208

PATIENT
  Age: 48 Year
  Sex: Female

DRUGS (1)
  1. PACLITAXEL ACTAVIS [Suspect]
     Indication: MALIGNANT NEOPLASM OF UTERINE ADNEXA
     Dosage: 250 MG, CYCLICAL
     Route: 042
     Dates: start: 20140219, end: 20140312

REACTIONS (1)
  - Generalised erythema [Recovered/Resolved]
